FAERS Safety Report 17611005 (Version 6)
Quarter: 2021Q1

REPORT INFORMATION
  Report Type: Report from Study
  Country: None (occurrence: NL)
  Receive Date: 20200401
  Receipt Date: 20210318
  Transmission Date: 20210419
  Serious: Yes (Other)
  Sender: FDA-Public Use
  Company Number: NL-ABBVIE-19S-114-2755369-00

PATIENT
  Sex: Female
  Weight: 67 kg

DRUGS (7)
  1. DUODOPA [Suspect]
     Active Substance: CARBIDOPA\LEVODOPA
     Indication: PARKINSON^S DISEASE
     Dosage: MD: 9.0, CD: 3.3, ED 2.8./557504  (FROM 1 PM) MD?CD: 3.5 ML ED 2.8
     Route: 050
     Dates: start: 20170410
  2. MACROGOL [Concomitant]
     Active Substance: POLYETHYLENE GLYCOLS
     Indication: ABNORMAL FAECES
     Dosage: SACHETS
  3. DUODOPA [Suspect]
     Active Substance: CARBIDOPA\LEVODOPA
     Dosage: MD 9.0 ML, CD 3.6 ML/HR, ED 2.9 ML CND 3.8 ML/HR, END 2.8 ML
     Route: 050
  4. STALEVO [Concomitant]
     Active Substance: CARBIDOPA\ENTACAPONE\LEVODOPA
     Indication: PARKINSON^S DISEASE
  5. DUODOPA [Suspect]
     Active Substance: CARBIDOPA\LEVODOPA
     Dosage: PUMP 1 MD 9.0 CD 3.4 ED 2.8 PUMP 2 MD 0 CD 3.8 ED 2.8
     Route: 050
  6. DUODOPA [Suspect]
     Active Substance: CARBIDOPA\LEVODOPA
     Dosage: MD 9.0 ML, CD 3.4 ML/H, ED 2.9 ML, FROM 1 PM TO 10:30 PM: CND 3.8 ML/HR, END 2.8 ML.
     Route: 050
  7. MADOPAR DISPERSIBL [Concomitant]
     Active Substance: BENSERAZIDE HYDROCHLORIDE\LEVODOPA
     Indication: PARKINSON^S DISEASE
     Dosage: HALFWAY THE NIGHT 1

REACTIONS (46)
  - Nervousness [Not Recovered/Not Resolved]
  - Feeling abnormal [Not Recovered/Not Resolved]
  - Weight decreased [Recovered/Resolved]
  - Malaise [Not Recovered/Not Resolved]
  - Dyskinesia [Recovered/Resolved]
  - Initial insomnia [Recovered/Resolved]
  - Device issue [Unknown]
  - Parkinson^s disease [Not Recovered/Not Resolved]
  - Gait disturbance [Not Recovered/Not Resolved]
  - Therapeutic product effect incomplete [Unknown]
  - Constipation [Recovered/Resolved]
  - Fine motor skill dysfunction [Not Recovered/Not Resolved]
  - Unevaluable event [Not Recovered/Not Resolved]
  - Depressed mood [Not Recovered/Not Resolved]
  - Weight decreased [Not Recovered/Not Resolved]
  - Tremor [Unknown]
  - Neoplasm [Unknown]
  - Device occlusion [Unknown]
  - Dystonia [Not Recovered/Not Resolved]
  - Therapeutic product effect variable [Not Recovered/Not Resolved]
  - Constipation [Recovering/Resolving]
  - Pollakiuria [Not Recovered/Not Resolved]
  - Mood swings [Not Recovered/Not Resolved]
  - Muscle rigidity [Not Recovered/Not Resolved]
  - On and off phenomenon [Not Recovered/Not Resolved]
  - Stoma site hypergranulation [Unknown]
  - Fatigue [Unknown]
  - Memory impairment [Recovered/Resolved]
  - Fibroma [Not Recovered/Not Resolved]
  - Balance disorder [Unknown]
  - Device issue [Recovered/Resolved]
  - Fatigue [Not Recovered/Not Resolved]
  - Stoma site haemorrhage [Recovered/Resolved]
  - Tension [Unknown]
  - Dyskinesia [Unknown]
  - Fibroma [Recovered/Resolved]
  - Meniere^s disease [Not Recovered/Not Resolved]
  - Medical device discomfort [Unknown]
  - Bradykinesia [Not Recovered/Not Resolved]
  - Terminal insomnia [Not Recovered/Not Resolved]
  - Mobility decreased [Not Recovered/Not Resolved]
  - Diverticulum [Unknown]
  - Weight increased [Recovered/Resolved]
  - Middle insomnia [Not Recovered/Not Resolved]
  - Stoma site discharge [Not Recovered/Not Resolved]
  - Stoma site discharge [Recovered/Resolved]

NARRATIVE: CASE EVENT DATE: 2020
